FAERS Safety Report 20182105 (Version 5)
Quarter: 2022Q1

REPORT INFORMATION
  Report Type: Report from Study
  Country: GR (occurrence: GR)
  Receive Date: 20211214
  Receipt Date: 20220322
  Transmission Date: 20220423
  Serious: Yes (Life-Threatening, Hospitalization)
  Sender: FDA-Public Use
  Company Number: GR-BAXTER-2021BAX039852

PATIENT
  Age: 65 Year
  Sex: Male
  Weight: 95 kg

DRUGS (5)
  1. DOXORUBICIN HYDROCHLORIDE [Suspect]
     Active Substance: DOXORUBICIN HYDROCHLORIDE
     Indication: Plasma cell leukaemia
     Dosage: 65.4 MG/M2, 4
     Route: 042
     Dates: start: 20211204, end: 20211204
  2. CYCLOPHOSPHAMIDE [Suspect]
     Active Substance: CYCLOPHOSPHAMIDE
     Indication: Plasma cell leukaemia
     Route: 048
  3. DARATUMUMAB [Suspect]
     Active Substance: DARATUMUMAB
     Indication: Plasma cell leukaemia
     Dosage: D 1,8,15
     Route: 058
     Dates: start: 20211130, end: 20211214
  4. VELCADE [Suspect]
     Active Substance: BORTEZOMIB
     Indication: Plasma cell leukaemia
     Dosage: D 1,4,8,11
     Route: 058
     Dates: start: 20211130, end: 20211210
  5. DEXAMETHASONE [Suspect]
     Active Substance: DEXAMETHASONE
     Indication: Plasma cell leukaemia
     Dosage: D1,4,8,11
     Route: 048
     Dates: start: 20211130, end: 20211210

REACTIONS (2)
  - Pyelonephritis [Recovered/Resolved]
  - Orthostatic hypotension [Not Recovered/Not Resolved]

NARRATIVE: CASE EVENT DATE: 20211202
